FAERS Safety Report 22359433 (Version 2)
Quarter: 2023Q2

REPORT INFORMATION
  Report Type: Spontaneous
  Country: ES (occurrence: None)
  Receive Date: 20230524
  Receipt Date: 20230531
  Transmission Date: 20230721
  Serious: Yes (Disabling)
  Sender: FDA-Public Use
  Company Number: ES-ROCHE-3354389

PATIENT
  Sex: Male

DRUGS (2)
  1. RITUXIMAB [Suspect]
     Active Substance: RITUXIMAB
     Indication: Multiple sclerosis
     Dosage: EVERY 6 MONTHS IN THE DAY
     Route: 065
     Dates: start: 202208
  2. RITUXIMAB [Suspect]
     Active Substance: RITUXIMAB
     Dosage: EVERY 6 MONTHS IN THE DAY
     Route: 065
     Dates: start: 202302

REACTIONS (2)
  - Off label use [Unknown]
  - Walking aid user [Unknown]
